FAERS Safety Report 8033916-8 (Version None)
Quarter: 2011Q4

REPORT INFORMATION
  Report Type: 
  Country: None (occurrence: None)
  Receive Date: 20111222
  Receipt Date: 20111212
  Transmission Date: 20120403
  Serious: Yes (Hospitalization, Other)
  Sender: FDA-Public Use
  Company Number: 2011MA017527

PATIENT
  Sex: Female

DRUGS (13)
  1. DIGOXIN [Suspect]
     Indication: PRODUCT USED FOR UNKNOWN INDICATION
     Dosage: 0.125 MG;QD;PO
     Route: 048
     Dates: start: 20031031, end: 20080706
  2. LASIX [Concomitant]
  3. PROTONIX [Concomitant]
  4. KLOR-CON [Concomitant]
  5. LEVOTHYROXINE SODIUM [Concomitant]
  6. CODEINE SULFATE [Concomitant]
  7. GLYCOLAX [Concomitant]
  8. COLACE [Concomitant]
  9. DIOVAN [Concomitant]
  10. ZOCOR [Concomitant]
  11. COUMADIN [Concomitant]
  12. METOPROLOL TARTRATE [Concomitant]
  13. METAPROTERENOL [Concomitant]

REACTIONS (30)
  - HYPOTHYROIDISM [None]
  - CARDIOMEGALY [None]
  - CARDIOACTIVE DRUG LEVEL INCREASED [None]
  - EPISTAXIS [None]
  - PERICARDIAL EFFUSION [None]
  - GASTROOESOPHAGEAL REFLUX DISEASE [None]
  - RENAL FAILURE CHRONIC [None]
  - PULMONARY HYPERTENSION [None]
  - IRON DEFICIENCY [None]
  - CHOLECYSTECTOMY [None]
  - FATIGUE [None]
  - VISUAL ACUITY REDUCED [None]
  - CARDIAC VALVE REPLACEMENT COMPLICATION [None]
  - OEDEMA PERIPHERAL [None]
  - HYPERTENSIVE NEPHROPATHY [None]
  - NECROSIS [None]
  - CARDIAC FAILURE CONGESTIVE [None]
  - TRICUSPID VALVE INCOMPETENCE [None]
  - OBESITY [None]
  - ELECTROCARDIOGRAM REPOLARISATION ABNORMALITY [None]
  - ISCHAEMIC CARDIOMYOPATHY [None]
  - PLEURAL EFFUSION [None]
  - MITRAL VALVE CALCIFICATION [None]
  - BUNDLE BRANCH BLOCK LEFT [None]
  - CONSTIPATION [None]
  - CHANGE OF BOWEL HABIT [None]
  - ARTERIOSCLEROSIS CORONARY ARTERY [None]
  - ATRIAL FIBRILLATION [None]
  - MITRAL VALVE INCOMPETENCE [None]
  - MICROCYTIC ANAEMIA [None]
